FAERS Safety Report 24460414 (Version 1)
Quarter: 2024Q4

REPORT INFORMATION
  Report Type: Spontaneous
  Country: CN (occurrence: CN)
  Receive Date: 20241018
  Receipt Date: 20241018
  Transmission Date: 20250115
  Serious: No
  Sender: ROCHE
  Company Number: CN-ROCHE-3536245

PATIENT
  Age: 52 Year
  Sex: Male

DRUGS (1)
  1. MABTHERA [Suspect]
     Active Substance: RITUXIMAB
     Indication: Pemphigus
     Dosage: MOST RECENT DOSE RECEIVED ON 12/MAR/2024
     Route: 065
     Dates: start: 20240227

REACTIONS (2)
  - Off label use [Unknown]
  - No adverse event [Unknown]
